FAERS Safety Report 8085614-2 (Version None)
Quarter: 2012Q1

REPORT INFORMATION
  Report Type: 
  Country: None (occurrence: None)
  Receive Date: 20120128
  Receipt Date: 20110401
  Transmission Date: 20120608
  Serious: No
  Sender: FDA-Public Use
  Company Number: US-ABBOTT-11P-163-0715769-00

PATIENT
  Age: 39 Year
  Sex: Female

DRUGS (5)
  1. HUMIRA [Suspect]
     Indication: PSORIASIS
     Dates: start: 20100901
  2. SPIRONOLACTONE [Concomitant]
     Indication: POLYCYSTIC OVARIES
  3. WELLBUTRIN [Concomitant]
     Indication: POLYCYSTIC OVARIES
  4. METFFORMIN HYDROCHLORIDE [Concomitant]
     Indication: POLYCYSTIC OVARIES
  5. SIMVASTATIN [Concomitant]
     Indication: POLYCYSTIC OVARIES

REACTIONS (3)
  - INJECTION SITE SWELLING [None]
  - INJECTION SITE INDURATION [None]
  - INJECTION SITE WARMTH [None]
